FAERS Safety Report 18388040 (Version 2)
Quarter: 2020Q4

REPORT INFORMATION
  Report Type: Report from Study
  Country: US (occurrence: US)
  Receive Date: 20201015
  Receipt Date: 20201120
  Transmission Date: 20210114
  Serious: No
  Sender: FDA-Public Use
  Company Number: NVSC2020US277214

PATIENT
  Sex: Female

DRUGS (1)
  1. BEOVU [Suspect]
     Active Substance: BROLUCIZUMAB-DBLL
     Indication: NEOVASCULAR AGE-RELATED MACULAR DEGENERATION
     Dosage: UNK (BOTH EYES)
     Route: 047
     Dates: start: 20201009

REACTIONS (5)
  - Pain [Unknown]
  - Depression [Unknown]
  - Vision blurred [Unknown]
  - Eye irritation [Recovered/Resolved]
  - Arthritis [Unknown]
